FAERS Safety Report 6037462-2 (Version None)
Quarter: 2009Q1

REPORT INFORMATION
  Report Type: 
  Country: None (occurrence: None)
  Receive Date: 20090114
  Receipt Date: 20090109
  Transmission Date: 20090719
  Serious: Yes (Death, Other)
  Sender: FDA-Public Use
  Company Number: US-WYE-H07296208

PATIENT
  Sex: Female

DRUGS (2)
  1. PREMPRO [Suspect]
  2. CONJUGATED ESTROGENS [Suspect]

REACTIONS (2)
  - BREAST CANCER [None]
  - BREAST CANCER FEMALE [None]
